FAERS Safety Report 7360045-9 (Version None)
Quarter: 2011Q1

REPORT INFORMATION
  Report Type: 
  Country: None (occurrence: None)
  Receive Date: 20110317
  Receipt Date: 20091209
  Transmission Date: 20110831
  Serious: No
  Sender: FDA-Public Use
  Company Number: US-PFIZER INC-2009290423

PATIENT
  Sex: Female
  Weight: 55.782 kg

DRUGS (6)
  1. MAGNESIUM [Concomitant]
     Dosage: UNK
  2. BENADRYL [Concomitant]
     Dosage: FREQUENCY: AS NEEDED,
  3. ASCORBIC ACID [Concomitant]
     Dosage: UNK
  4. CENTRUM SILVER [Concomitant]
     Dosage: UNK
  5. TYLENOL-500 [Concomitant]
     Indication: PAIN
     Dosage: FREQUENCY: AS NEEDED,
  6. NORVASC [Suspect]
     Indication: HYPERTENSION
     Dosage: 2.5 MG, 2X/DAY
     Dates: start: 20090901

REACTIONS (1)
  - VISION BLURRED [None]
